FAERS Safety Report 12786762 (Version 1)
Quarter: 2016Q3

REPORT INFORMATION
  Report Type: Spontaneous
  Country: US (occurrence: US)
  Receive Date: 20160928
  Receipt Date: 20160928
  Transmission Date: 20161109
  Serious: No
  Sender: FDA-Public Use
  Company Number: US-PFIZER INC-2016445591

PATIENT
  Age: 66 Year
  Sex: Male

DRUGS (1)
  1. PROCARDIA [Suspect]
     Active Substance: NIFEDIPINE

REACTIONS (1)
  - Drug hypersensitivity [Unknown]
